FAERS Safety Report 12982174 (Version 3)
Quarter: 2019Q1

REPORT INFORMATION
  Report Type: Spontaneous
  Country: US (occurrence: US)
  Receive Date: 20161129
  Receipt Date: 20190211
  Transmission Date: 20190417
  Serious: No
  Sender: FDA-Public Use
  Company Number: US-PFIZER INC-2016545926

PATIENT
  Age: 75 Year
  Sex: Female

DRUGS (1)
  1. METRONIDAZOLE. [Suspect]
     Active Substance: METRONIDAZOLE
     Dosage: UNK

REACTIONS (3)
  - Nausea [Unknown]
  - Dry mouth [Unknown]
  - Drug hypersensitivity [Unknown]
